FAERS Safety Report 6025507-5 (Version None)
Quarter: 2008Q4

REPORT INFORMATION
  Report Type: 
  Country: None (occurrence: None)
  Receive Date: 20081218
  Receipt Date: 20080827
  Transmission Date: 20090506
  Serious: No
  Sender: FDA-Public Use
  Company Number: 2008-182821-NL

PATIENT
  Age: 61 Year
  Sex: Male

DRUGS (4)
  1. TICE BCG [Suspect]
     Indication: TRANSITIONAL CELL CARCINOMA
     Dosage: INTRAVESICAL
     Route: 043
     Dates: start: 20080115, end: 20080226
  2. TICE BCG [Suspect]
     Indication: TRANSITIONAL CELL CARCINOMA
     Dosage: INTRAVESICAL
     Route: 043
     Dates: start: 20080429, end: 20080513
  3. TICE BCG [Suspect]
     Indication: TRANSITIONAL CELL CARCINOMA
     Dosage: INTRAVESICAL
     Route: 043
     Dates: start: 20080721, end: 20080721
  4. MITOMYCIN [Concomitant]

REACTIONS (1)
  - VASCULITIS [None]
